FAERS Safety Report 6347584-4 (Version None)
Quarter: 2009Q3

REPORT INFORMATION
  Report Type: 
  Country: None (occurrence: None)
  Receive Date: 20090909
  Receipt Date: 20090909
  Transmission Date: 20100115
  Serious: Yes (Life-Threatening)
  Sender: FDA-Public Use
  Company Number: None

PATIENT
  Sex: Female
  Weight: 58.9676 kg

DRUGS (5)
  1. GABAPENTIN [Suspect]
     Indication: NEURALGIA
     Dosage: 300 MG THREE TIMES DAILY PO
     Route: 048
     Dates: start: 20090709, end: 20090817
  2. ESTRADIOL [Concomitant]
  3. MELOXICAM [Concomitant]
  4. NORCO [Concomitant]
  5. DIAZEPAM [Concomitant]

REACTIONS (7)
  - AGGRESSION [None]
  - DIPLOPIA [None]
  - LIP SWELLING [None]
  - MOOD ALTERED [None]
  - NAUSEA [None]
  - PERSONALITY CHANGE [None]
  - SUICIDAL IDEATION [None]
